FAERS Safety Report 17604580 (Version 19)
Quarter: 2022Q4

REPORT INFORMATION
  Report Type: Spontaneous
  Country: US (occurrence: US)
  Receive Date: 20200331
  Receipt Date: 20221019
  Transmission Date: 20230113
  Serious: Yes (Other)
  Sender: FDA-Public Use
  Company Number: US-PFIZER INC-2017438951

PATIENT
  Age: 77 Year
  Sex: Female
  Weight: 95.25 kg

DRUGS (18)
  1. CALAN SR [Suspect]
     Active Substance: VERAPAMIL HYDROCHLORIDE
     Indication: Blood pressure fluctuation
     Dosage: 120 MG TO 240 MG (ONE-HALF TO FULL TABLET), AS NEEDED
     Route: 048
     Dates: start: 2016
  2. CALAN SR [Suspect]
     Active Substance: VERAPAMIL HYDROCHLORIDE
     Indication: Arrhythmia
     Dosage: HALF IN THE MORNING AND A QUARTER IN THE EVENING
  3. CALAN SR [Suspect]
     Active Substance: VERAPAMIL HYDROCHLORIDE
     Indication: Tachycardia
     Dosage: 120MG ONCE IN THE MORNING, AND 120MG IN EVENING AS NEEDED
  4. CALAN SR [Suspect]
     Active Substance: VERAPAMIL HYDROCHLORIDE
     Indication: Supraventricular tachycardia
     Dosage: 240 MG (QUANTITY FOR 90 DAYS: 90)
  5. CALAN SR [Suspect]
     Active Substance: VERAPAMIL HYDROCHLORIDE
     Indication: Cardiac disorder
     Dosage: 120 MG, 2X/DAY (240MG HALF A TABLET BY MOUTH TWICE A DAY)
     Route: 048
  6. CALAN SR [Suspect]
     Active Substance: VERAPAMIL HYDROCHLORIDE
     Indication: Hypertension
  7. SYNTHROID [Concomitant]
     Active Substance: LEVOTHYROXINE SODIUM
     Indication: Thyroid disorder
     Dosage: 175 UG
  8. SYNTHROID [Concomitant]
     Active Substance: LEVOTHYROXINE SODIUM
     Dosage: 112 UG
  9. ATENOLOL [Concomitant]
     Active Substance: ATENOLOL
     Indication: Tachycardia
     Dosage: 12.5 MG (WHEN TACHYCARDIA WILL TAKE THE OTHER HALF)
  10. VALIUM [Concomitant]
     Active Substance: DIAZEPAM
     Indication: Neoplasm malignant
     Dosage: 5 MG, AS NEEDED (3-4 TIMES A DAY)
  11. FUROSEMIDE [Concomitant]
     Active Substance: FUROSEMIDE
     Indication: Fluid retention
     Dosage: 20 MG, WEEKLY (THREE TIMES A WEEK)
  12. POTASSIUM [Concomitant]
     Active Substance: POTASSIUM
     Dosage: TAKES WITH THE FUROSEMIDE
  13. ASPIRIN [Concomitant]
     Active Substance: ASPIRIN
     Dosage: UNK, WEEKLY (THREE TIMES A WEEK)
  14. VITAMIN D3 [Concomitant]
     Active Substance: CHOLECALCIFEROL
     Dosage: 2000 IU, DAILY
  15. FAMOTIDINE [Concomitant]
     Active Substance: FAMOTIDINE
     Indication: Dyspepsia
     Dosage: 40 MG, 1X/DAY
  16. BENADRYL [Concomitant]
     Active Substance: DIPHENHYDRAMINE HYDROCHLORIDE
     Indication: Hypersensitivity
     Dosage: UNK, AS NEEDED
  17. EPIPEN [Concomitant]
     Active Substance: EPINEPHRINE
     Dosage: UNK, AS NEEDED
  18. VITAMIN C [Concomitant]
     Active Substance: ASCORBIC ACID
     Dosage: 500 MG, DAILY

REACTIONS (19)
  - Loss of consciousness [Unknown]
  - Cardiac flutter [Not Recovered/Not Resolved]
  - Thyroid cancer [Unknown]
  - Electrocardiogram ST segment depression [Unknown]
  - Weight increased [Unknown]
  - Back disorder [Unknown]
  - Illness [Unknown]
  - Hypoaesthesia [Unknown]
  - Ear disorder [Unknown]
  - Tremor [Unknown]
  - White coat hypertension [Unknown]
  - Chest discomfort [Not Recovered/Not Resolved]
  - Nervousness [Unknown]
  - Stress [Unknown]
  - Blood pressure fluctuation [Unknown]
  - Crying [Unknown]
  - Mental disorder [Unknown]
  - Wrong technique in product usage process [Unknown]
  - Atrioventricular block [Unknown]

NARRATIVE: CASE EVENT DATE: 20160101
